FAERS Safety Report 5595952-0 (Version None)
Quarter: 2008Q1

REPORT INFORMATION
  Report Type: 
  Country: None (occurrence: None)
  Receive Date: 20080118
  Receipt Date: 20080108
  Transmission Date: 20080703
  Serious: Yes (Hospitalization, Other)
  Sender: FDA-Public Use
  Company Number: US-ELI_LILLY_AND_COMPANY-US200801001439

PATIENT
  Age: 66 Year
  Sex: Male

DRUGS (1)
  1. CIALIS [Suspect]

REACTIONS (2)
  - LOSS OF CONSCIOUSNESS [None]
  - NASOPHARYNGITIS [None]
